FAERS Safety Report 24466539 (Version 1)
Quarter: 2024Q4

REPORT INFORMATION
  Report Type: Spontaneous
  Country: US (occurrence: US)
  Receive Date: 20241018
  Receipt Date: 20241018
  Transmission Date: 20250115
  Serious: No
  Sender: ROCHE
  Company Number: US-ROCHE-3546449

PATIENT
  Age: 21 Year
  Sex: Female

DRUGS (1)
  1. XOLAIR [Suspect]
     Active Substance: OMALIZUMAB
     Indication: Product used for unknown indication
     Dosage: 2 X 150 MG
     Route: 065

REACTIONS (4)
  - Loss of consciousness [Unknown]
  - Injury associated with device [Unknown]
  - Tremor [Unknown]
  - Presyncope [Unknown]
